FAERS Safety Report 20430791 (Version 1)
Quarter: 2022Q1

REPORT INFORMATION
  Report Type: Report from Study
  Country: FR (occurrence: FR)
  Receive Date: 20220204
  Receipt Date: 20220204
  Transmission Date: 20220423
  Serious: Yes (Other)
  Sender: FDA-Public Use
  Company Number: FR-SERVIER-S21005757

PATIENT

DRUGS (5)
  1. PEGASPARGASE [Suspect]
     Active Substance: PEGASPARGASE
     Indication: Acute lymphocytic leukaemia
     Dosage: 1050 IU, D12, D26 MAKE A D29
     Route: 042
     Dates: start: 20200818, end: 20200904
  2. TN UNSPECIFIED [Concomitant]
     Indication: Acute lymphocytic leukaemia
     Dosage: 1.2 MG, D8, D14, D22, D29
     Route: 042
     Dates: start: 20200814, end: 20200904
  3. TN UNSPECIFIED [Concomitant]
     Indication: Acute lymphocytic leukaemia
     Dosage: 50 MG, D1 TO D7
     Route: 042
     Dates: start: 20200807, end: 20200813
  4. TN UNSPECIFIED [Concomitant]
     Indication: Acute lymphocytic leukaemia
     Dosage: 5 MG, D8 TO D28
     Route: 048
     Dates: start: 20200814, end: 20200903
  5. TN UNSPECIFIED [Concomitant]
     Indication: Acute lymphocytic leukaemia
     Dosage: 12 MG, D1, D13, D24
     Route: 037
     Dates: start: 20200807, end: 20200819

REACTIONS (2)
  - Hypofibrinogenaemia [Recovered/Resolved]
  - Hyperlipidaemia [Recovered/Resolved]

NARRATIVE: CASE EVENT DATE: 20200825
